FAERS Safety Report 21741455 (Version 1)
Quarter: 2022Q4

REPORT INFORMATION
  Report Type: Spontaneous
  Country: GB (occurrence: GB)
  Receive Date: 20221216
  Receipt Date: 20221216
  Transmission Date: 20230112
  Serious: Yes (Hospitalization, Other)
  Sender: FDA-Public Use
  Company Number: GB-JNJFOC-20221161202

PATIENT
  Age: 86 Year
  Sex: Female

DRUGS (41)
  1. APIXABAN [Suspect]
     Active Substance: APIXABAN
     Indication: Product used for unknown indication
     Dosage: 10 MILLIGRAM DAILY; 10 MG, QD (DOSAGE FORM: UNSPECIFIED, OFF LABEL DOSING FREQUENCY), ADDITIONAL INF
     Route: 042
     Dates: start: 20180207, end: 20180207
  2. APIXABAN [Suspect]
     Active Substance: APIXABAN
     Indication: Atrial fibrillation
     Dosage: 5 MILLIGRAM DAILY; 5 MG, (QD), ADDITIONAL INFO: OLU: OFF LABEL DOSING FREQUENCY, DURATION : 1 DAY
     Route: 042
     Dates: start: 20180207, end: 20180207
  3. APIXABAN [Suspect]
     Active Substance: APIXABAN
     Indication: Cerebrovascular accident prophylaxis
  4. BISOPROLOL FUMARATE [Suspect]
     Active Substance: BISOPROLOL FUMARATE
     Indication: Product used for unknown indication
     Dosage: 10 MILLIGRAM DAILY; 10 MG, ONE DAY
     Route: 048
  5. BISOPROLOL FUMARATE [Suspect]
     Active Substance: BISOPROLOL FUMARATE
     Indication: Cerebrovascular accident prophylaxis
     Dosage: 5 MILLIGRAM DAILY; 5 MG DAILY, DURATION : 1 DAY
     Route: 048
     Dates: start: 20180207, end: 20180207
  6. CANDESARTAN CILEXETIL [Suspect]
     Active Substance: CANDESARTAN CILEXETIL
     Indication: Cerebrovascular accident prophylaxis
     Dosage: UNK
     Route: 065
  7. CANDESARTAN CILEXETIL [Suspect]
     Active Substance: CANDESARTAN CILEXETIL
     Indication: Product used for unknown indication
     Dosage: 2 MILLIGRAM DAILY; 2 MG, ONCE DAILY (QD) MORNING , ADDITIONAL INFO: OFF LABEL DOSING FREQUENCY
     Route: 048
  8. CANDESARTAN CILEXETIL [Suspect]
     Active Substance: CANDESARTAN CILEXETIL
     Dosage: 2 MILLIGRAM DAILY; 2 MG, QD MORNING
     Route: 048
  9. CETIRIZINE HYDROCHLORIDE [Suspect]
     Active Substance: CETIRIZINE HYDROCHLORIDE
     Indication: Product used for unknown indication
     Dosage: 10 MILLIGRAM DAILY; 10 MG, ONCE DAILY (QD) (MORNING), ADDITIONAL INFO: MISUSE,OFF LABEL USE
     Route: 048
  10. ISOSORBIDE [Suspect]
     Active Substance: ISOSORBIDE
     Indication: Product used for unknown indication
     Dosage: UNK
     Route: 065
  11. ISOSORBIDE [Suspect]
     Active Substance: ISOSORBIDE
     Dosage: 50 MILLIGRAM DAILY; 50 MG, ONCE DAILY (QD)  (MORNING)
     Route: 048
  12. ISOSORBIDE [Suspect]
     Active Substance: ISOSORBIDE
     Dosage: 50 MILLIGRAM DAILY; 50 MG, ONCE DAILY (QD)  (MORNING)
     Route: 048
  13. ISOSORBIDE [Suspect]
     Active Substance: ISOSORBIDE
     Dosage: 50 MILLIGRAM DAILY; 50 MILLIGRAM, ONCE A DAY(MORNING)
     Route: 048
  14. LANSOPRAZOLE [Suspect]
     Active Substance: LANSOPRAZOLE
     Indication: Atrial fibrillation
     Dosage: 10 MILLIGRAM DAILY; 10 MILLIGRAM, QD; 5MG, QD, DURATION : 1 DAY
     Route: 065
     Dates: start: 20180207, end: 20180207
  15. LANSOPRAZOLE [Suspect]
     Active Substance: LANSOPRAZOLE
     Indication: Product used for unknown indication
     Dosage: 5 MILLIGRAM DAILY; 10 MG (1 DAY) / 1 / 10 MILLIGRAM / 1 DAYS, UNIT DOSE : 5 MG, OD, DURATION : 1 DAY
     Route: 065
     Dates: start: 20180207, end: 20180207
  16. LANSOPRAZOLE [Suspect]
     Active Substance: LANSOPRAZOLE
     Dosage: 5 MILLIGRAM DAILY; 5 MILLIGRAM, QD, THERAPY START DATE : NASK
     Route: 065
     Dates: end: 20180218
  17. LANSOPRAZOLE [Suspect]
     Active Substance: LANSOPRAZOLE
     Dosage: 30 MILLIGRAM DAILY; 30 MG, ONCE DAILY (QD) (MORNING)
     Route: 065
  18. LANSOPRAZOLE [Suspect]
     Active Substance: LANSOPRAZOLE
     Dosage: 10 MILLIGRAM DAILY; 10 MILLIGRAM, QD, (10 MG (1 DAY), THERAPY START DATE : NASK
     Route: 065
     Dates: end: 20180218
  19. SIMVASTATIN [Suspect]
     Active Substance: SIMVASTATIN
     Indication: Product used for unknown indication
     Dosage: 40 MILLIGRAM DAILY; 40 MILLIGRAM, HS, ADDITIONAL INFO: MISUSE,OFF LABEL USE,MISUSE,OFF LABEL USE,OFF
     Route: 065
  20. SIMVASTATIN [Suspect]
     Active Substance: SIMVASTATIN
     Dosage: 40 MILLIGRAM DAILY; 40 MILLIGRAM, HS, ADDITIONAL INFO: MISUSE,OFF LABEL USE,MISUSE,OFF LABEL USE,OFF
     Route: 065
  21. SIMVASTATIN [Suspect]
     Active Substance: SIMVASTATIN
     Dosage: 40 MILLIGRAM DAILY; 40 MG, ONCE DAILY (QD)(NIGHT), ADDITIONAL INFO: MISUSE,OFF LABEL USE,MISUSE,OFF
     Route: 048
  22. SIMVASTATIN [Suspect]
     Active Substance: SIMVASTATIN
     Dosage: 40 MILLIGRAM DAILY; 40 MG, ONCE DAILY (QD), ADDITIONAL INFO: MISUSE, OFF LABEL USESIMVASTATIN
     Route: 065
  23. SIMVASTATIN [Suspect]
     Active Substance: SIMVASTATIN
     Dosage: 40 MILLIGRAM DAILY; 40 MG, QD (NIGHT), ADDITIONAL INFO: MISUSE,OFF LABEL USE,MISUSE,OFF LABEL USE,OF
     Route: 065
  24. LEVOTHYROXINE SODIUM [Suspect]
     Active Substance: LEVOTHYROXINE SODIUM
     Indication: Product used for unknown indication
     Dosage: 30 MICROGRAM DAILY; 30 MG, ONCE DAILY MORNING, ADDITIONAL INFO: MISUSE,OFF LABEL USE
     Route: 065
  25. LEVOTHYROXINE SODIUM [Suspect]
     Active Substance: LEVOTHYROXINE SODIUM
     Dosage: 50 MILLIGRAM DAILY; 50 MG, OD, ADDITIONAL INFO: MISUSE,OFF LABEL USE
     Route: 065
  26. LEVOTHYROXINE SODIUM [Suspect]
     Active Substance: LEVOTHYROXINE SODIUM
     Dosage: 50 MG
     Route: 065
  27. LEVOTHYROXINE SODIUM [Suspect]
     Active Substance: LEVOTHYROXINE SODIUM
     Dosage: 50 GRAM DAILY; 1 DF - 50G, ONCE DAILY (QD)125 MCG, QD (MORNING), ADDITIONAL INFO: MISUSE,OFF LABEL U
     Route: 066
  28. LEVOTHYROXINE SODIUM [Suspect]
     Active Substance: LEVOTHYROXINE SODIUM
     Dosage: 10 MILLIGRAM DAILY; 10 MG, QD (10 MILLIGRAM, QD; 5MG, QD), ADDITIONAL INFO: MISUSE,OFF LABEL USE
     Route: 065
  29. LEVOTHYROXINE SODIUM [Suspect]
     Active Substance: LEVOTHYROXINE SODIUM
     Dosage: 125 MICROGRAM DAILY; 125 MICROGRAM, QD (MORNING), ADDITIONAL INFO: MISUSE,OFF LABEL USE
     Route: 065
  30. LEVOTHYROXINE SODIUM [Suspect]
     Active Substance: LEVOTHYROXINE SODIUM
     Dosage: 50 MILLIGRAM DAILY; 1 DF - 50G, ONCE DAILY (QD), ADDITIONAL INFO: MISUSE,OFF LABEL USE, UNIT DOSE :
     Route: 065
  31. LEVOTHYROXINE SODIUM [Suspect]
     Active Substance: LEVOTHYROXINE SODIUM
     Dosage: 50 MICROGRAM DAILY; 50 MCG, QD (50 MCG MORNING), ADDITIONAL INFO: MISUSE,OFF LABEL USE
     Route: 065
  32. LEVOTHYROXINE SODIUM [Suspect]
     Active Substance: LEVOTHYROXINE SODIUM
     Dosage: 1 DOSAGE FORMS DAILY; 1 DF, OD
     Route: 065
  33. LEVOTHYROXINE SODIUM [Suspect]
     Active Substance: LEVOTHYROXINE SODIUM
     Dosage: 12 MICROGRAM DAILY; 12 MICROGRAM, QD, ADDITIONAL INFO: MISUSE,OFF LABEL USE
     Route: 048
  34. DIGOXIN [Suspect]
     Active Substance: DIGOXIN
     Indication: Product used for unknown indication
     Dosage: 62.5 MICROGRAM DAILY; 62.5 MICROGRAM, ONCE DAILY (QD) (MORNING)
     Route: 065
  35. DIGOXIN [Suspect]
     Active Substance: DIGOXIN
     Indication: Cerebrovascular accident prophylaxis
     Dosage: 62.5 GRAM DAILY; 62.5 GRAM, QD
     Route: 065
  36. DIGOXIN [Suspect]
     Active Substance: DIGOXIN
     Dosage: 1 MICROGRAM DAILY; 1 MCG, OD
     Route: 065
  37. LINAGLIPTIN [Suspect]
     Active Substance: LINAGLIPTIN
     Indication: Product used for unknown indication
     Dosage: 5 MILLIGRAM DAILY; 5 MG, ONCE DAILY (QD) (MORNING)
     Route: 065
  38. ISOSORBIDE DINITRATE [Suspect]
     Active Substance: ISOSORBIDE DINITRATE
     Indication: Product used for unknown indication
     Dosage: 50 MILLIGRAM DAILY; 50 MILLIGRAM, MORNING ONCE A DAY
     Route: 048
  39. HYDROCHLOROTHIAZIDE [Suspect]
     Active Substance: HYDROCHLOROTHIAZIDE
     Indication: Cerebrovascular accident prophylaxis
     Dosage: 1 DOSAGE FORMS DAILY; 1DOSAGE FORM, QD (MORNING)
     Route: 048
  40. HYDROCHLOROTHIAZIDE [Suspect]
     Active Substance: HYDROCHLOROTHIAZIDE
     Indication: Product used for unknown indication
     Dosage: 10 MILLIGRAM, QD; 10MG/ML
     Route: 065
  41. HYDROCHLOROTHIAZIDE [Suspect]
     Active Substance: HYDROCHLOROTHIAZIDE
     Dosage: 2 MILLIGRAM DAILY; 2 MG, QD (MORNING), ADDITIONAL INFO: OFF LABEL USE
     Route: 048

REACTIONS (2)
  - Subarachnoid haemorrhage [Recovered/Resolved with Sequelae]
  - Intentional product misuse [Unknown]
